FAERS Safety Report 5131806-1 (Version None)
Quarter: 2006Q4

REPORT INFORMATION
  Report Type: 
  Country: None (occurrence: None)
  Receive Date: 20061016
  Receipt Date: 20061004
  Transmission Date: 20070319
  Serious: Yes (Other)
  Sender: FDA-Public Use
  Company Number: 2006107150

PATIENT
  Age: 33 Year
  Sex: Female
  Weight: 85 kg

DRUGS (4)
  1. ZOLOFT [Suspect]
     Dates: start: 20060706, end: 20060826
  2. ESCITALOPRAM [Concomitant]
  3. PAROXETINE HYDROCHLORIDE [Concomitant]
  4. PROZAC [Concomitant]

REACTIONS (3)
  - ABORTION SPONTANEOUS [None]
  - ANXIETY [None]
  - DRUG EXPOSURE DURING PREGNANCY [None]
